FAERS Safety Report 5860358-3 (Version None)
Quarter: 2008Q3

REPORT INFORMATION
  Report Type: 
  Country: None (occurrence: None)
  Receive Date: 20080827
  Receipt Date: 20070827
  Transmission Date: 20090109
  Serious: No
  Sender: FDA-Public Use
  Company Number: US-ABBOTT-07P-163-0415352-00

PATIENT

DRUGS (6)
  1. NIASPAN [Suspect]
     Indication: BLOOD TRIGLYCERIDES INCREASED
     Route: 048
     Dates: start: 20070809, end: 20070813
  2. NIASPAN [Suspect]
     Indication: HIGH DENSITY LIPOPROTEIN DECREASED
     Route: 048
     Dates: end: 20070808
  3. HUMALOG [Concomitant]
     Indication: DIABETES MELLITUS
  4. ACETYLSALICYLIC ACID SRT [Concomitant]
     Indication: DIABETES MELLITUS
  5. LANTUS [Concomitant]
     Indication: DRUG USE FOR UNKNOWN INDICATION
  6. FENOFIBRATE [Concomitant]
     Indication: DRUG USE FOR UNKNOWN INDICATION

REACTIONS (9)
  - ABDOMINAL DISTENSION [None]
  - BURNING SENSATION [None]
  - HYPERAESTHESIA [None]
  - IMPAIRED DRIVING ABILITY [None]
  - MYALGIA [None]
  - NAUSEA [None]
  - SENSORY DISTURBANCE [None]
  - TENDERNESS [None]
  - TREMOR [None]
